FAERS Safety Report 17901641 (Version 2)
Quarter: 2020Q3

REPORT INFORMATION
  Report Type: Spontaneous
  Country: US (occurrence: US)
  Receive Date: 20200616
  Receipt Date: 20200706
  Transmission Date: 20201103
  Serious: No
  Sender: FDA-Public Use
  Company Number: US-ASTRAZENECA-2020SE74719

PATIENT
  Age: 15083 Day
  Sex: Female
  Weight: 83.9 kg

DRUGS (3)
  1. LEVOTHYROXINE. [Concomitant]
     Active Substance: LEVOTHYROXINE
  2. PULMICORT FLEXHALER [Suspect]
     Active Substance: BUDESONIDE
     Indication: ASTHMA
     Route: 055
     Dates: start: 20200605
  3. SINGULAIR [Concomitant]
     Active Substance: MONTELUKAST SODIUM

REACTIONS (4)
  - Device ineffective [Unknown]
  - Wrong technique in device usage process [Unknown]
  - Inappropriate schedule of product administration [Unknown]
  - Dizziness [Unknown]

NARRATIVE: CASE EVENT DATE: 20200605
